FAERS Safety Report 10331191 (Version 1)
Quarter: 2014Q3

REPORT INFORMATION
  Report Type: Spontaneous
  Country: US (occurrence: None)
  Receive Date: 20140721
  Receipt Date: 20140721
  Transmission Date: 20150326
  Serious: Yes (Hospitalization)
  Sender: FDA-Public Use
  Company Number: None

PATIENT
  Age: 75 Year
  Sex: Male
  Weight: 76.3 kg

DRUGS (2)
  1. TRIPTORELIN PAMOATE [Concomitant]
     Active Substance: TRIPTORELIN PAMOATE
     Dates: end: 20140303
  2. CASODEX [Suspect]
     Active Substance: BICALUTAMIDE
     Dates: end: 20140701

REACTIONS (3)
  - Loss of consciousness [None]
  - Syncope [None]
  - Hypotension [None]

NARRATIVE: CASE EVENT DATE: 20140701
